FAERS Safety Report 22109060 (Version 1)
Quarter: 2023Q1

REPORT INFORMATION
  Report Type: Spontaneous
  Country: CN (occurrence: CN)
  Receive Date: 20230317
  Receipt Date: 20230317
  Transmission Date: 20230418
  Serious: Yes (Hospitalization, Other)
  Sender: FDA-Public Use
  Company Number: CN-PFIZER INC-PV202300050212

PATIENT
  Age: 3 Year
  Sex: Male
  Weight: 24 kg

DRUGS (2)
  1. CYTARABINE [Suspect]
     Active Substance: CYTARABINE
     Indication: Lymphocytic leukaemia
     Dosage: 1.48 G, 2X/DAY
     Route: 041
     Dates: start: 20230221, end: 20230223
  2. VINDESINE SULFATE [Suspect]
     Active Substance: VINDESINE SULFATE
     Indication: Lymphocytic leukaemia
     Dosage: 2.2 MG, WEEKLY
     Route: 042
     Dates: start: 20230222, end: 20230222

REACTIONS (3)
  - Myelosuppression [Recovering/Resolving]
  - C-reactive protein increased [Recovering/Resolving]
  - Pyrexia [Recovered/Resolved]

NARRATIVE: CASE EVENT DATE: 20230303
